FAERS Safety Report 10251896 (Version 2)
Quarter: 2014Q2

REPORT INFORMATION
  Report Type: Spontaneous
  Country: US (occurrence: US)
  Receive Date: 20140623
  Receipt Date: 20140623
  Transmission Date: 20141212
  Serious: Yes (Other)
  Sender: FDA-Public Use
  Company Number: US-AMGEN-USASP2014034719

PATIENT
  Age: 49 Year
  Sex: Female
  Weight: 109.75 kg

DRUGS (7)
  1. ENBREL [Suspect]
     Indication: PSORIATIC ARTHROPATHY
     Dosage: 50 MG, QWK
     Route: 065
     Dates: start: 20040212
  2. HUMIRA [Concomitant]
     Dosage: UNK
     Route: 065
  3. DILTIAZEM [Concomitant]
     Indication: HYPERTENSION
     Dosage: 60 MG, QD
     Route: 048
  4. GABAPENTIN [Concomitant]
     Indication: NEUROPATHY PERIPHERAL
     Dosage: 300 MG, TID
     Route: 048
  5. METFORMIN [Concomitant]
     Indication: DIABETES MELLITUS
     Dosage: 500 MG, BID
     Route: 048
  6. TOPIRAMATE [Concomitant]
     Indication: NEUROPATHY PERIPHERAL
     Dosage: 200 MG, BID
     Route: 048
  7. NABUMETONE [Concomitant]
     Indication: ARTHRITIS
     Dosage: 1 G, QD
     Route: 048

REACTIONS (4)
  - Diverticulitis [Not Recovered/Not Resolved]
  - Diverticulum [Not Recovered/Not Resolved]
  - Condition aggravated [Not Recovered/Not Resolved]
  - Joint lock [Not Recovered/Not Resolved]
